FAERS Safety Report 4652927-3 (Version None)
Quarter: 2005Q2

REPORT INFORMATION
  Report Type: 
  Country: None (occurrence: None)
  Receive Date: 20050503
  Receipt Date: 20050421
  Transmission Date: 20051028
  Serious: Yes (Other)
  Sender: FDA-Public Use
  Company Number: L05-JPN-01481-01

PATIENT
  Age: 29 Year
  Sex: Male

DRUGS (1)
  1. CARBAMAZEPINE [Suspect]
     Indication: EPILEPSY
     Dosage: 400 MG QD

REACTIONS (3)
  - INFERTILITY MALE [None]
  - SPERMATOZOA ABNORMAL [None]
  - SPERMATOZOA PROGRESSIVE MOTILITY DECREASED [None]
